FAERS Safety Report 19983319 (Version 1)
Quarter: 2021Q4

REPORT INFORMATION
  Report Type: Spontaneous
  Country: US (occurrence: US)
  Receive Date: 20211022
  Receipt Date: 20211022
  Transmission Date: 20220303
  Serious: Yes (Disabling)
  Sender: FDA-Public Use
  Company Number: None

PATIENT
  Age: 59 Year
  Sex: Female
  Weight: 66.6 kg

DRUGS (1)
  1. PRIVIGEN [Suspect]
     Active Substance: HUMAN IMMUNOGLOBULIN G
     Indication: Stiff person syndrome
     Dosage: ?          OTHER FREQUENCY:MONTHLY;
     Route: 042
     Dates: start: 20210910, end: 20210910

REACTIONS (5)
  - Headache [None]
  - Musculoskeletal stiffness [None]
  - Nausea [None]
  - Tinnitus [None]
  - Deafness unilateral [None]

NARRATIVE: CASE EVENT DATE: 20210910
